FAERS Safety Report 10763248 (Version 1)
Quarter: 2015Q1

REPORT INFORMATION
  Report Type: Other
  Country: US (occurrence: US)
  Receive Date: 20150204
  Receipt Date: 20150204
  Transmission Date: 20150721
  Serious: No
  Sender: FDA-Public Use
  Company Number: US-ACORDA-ACO_102255_2014

PATIENT
  Sex: Female

DRUGS (2)
  1. AMPYRA [Suspect]
     Active Substance: DALFAMPRIDINE
     Indication: GAIT DISTURBANCE
     Dosage: UNK
     Route: 065
     Dates: start: 201311, end: 20131219
  2. AMPYRA [Suspect]
     Active Substance: DALFAMPRIDINE
     Indication: BALANCE DISORDER

REACTIONS (4)
  - Incorrect drug dosage form administered [Recovered/Resolved]
  - Wrong technique in drug usage process [Recovered/Resolved]
  - Inappropriate schedule of drug administration [Recovered/Resolved]
  - Gait disturbance [None]

NARRATIVE: CASE EVENT DATE: 2013
